FAERS Safety Report 11928889 (Version 2)
Quarter: 2016Q1

REPORT INFORMATION
  Report Type: Report from Study
  Country: US (occurrence: US)
  Receive Date: 20160119
  Receipt Date: 20160310
  Transmission Date: 20160526
  Serious: Yes (Hospitalization)
  Sender: FDA-Public Use
  Company Number: US-BIOGEN-2015BI063396

PATIENT
  Age: 53 Year
  Sex: Female

DRUGS (8)
  1. TYSABRI [Suspect]
     Active Substance: NATALIZUMAB
     Indication: MULTIPLE SCLEROSIS
     Route: 042
     Dates: start: 20120120, end: 20130214
  2. PERCOCET [Concomitant]
     Active Substance: ACETAMINOPHEN\OXYCODONE HYDROCHLORIDE
     Indication: PRODUCT USED FOR UNKNOWN INDICATION
     Route: 065
  3. MORPHINE [Concomitant]
     Active Substance: MORPHINE
     Indication: PAIN
     Route: 065
     Dates: start: 2011
  4. TYSABRI [Suspect]
     Active Substance: NATALIZUMAB
     Route: 042
     Dates: start: 20130917
  5. ROBAXIN [Concomitant]
     Active Substance: METHOCARBAMOL
     Indication: PRODUCT USED FOR UNKNOWN INDICATION
     Route: 065
  6. TYSABRI [Suspect]
     Active Substance: NATALIZUMAB
     Route: 042
  7. BACLOFEN. [Concomitant]
     Active Substance: BACLOFEN
     Indication: PRODUCT USED FOR UNKNOWN INDICATION
     Route: 065
  8. CLONIDINE. [Concomitant]
     Active Substance: CLONIDINE
     Indication: PRODUCT USED FOR UNKNOWN INDICATION
     Route: 065
     Dates: start: 2014

REACTIONS (22)
  - Urinary tract infection [Recovered/Resolved with Sequelae]
  - Knee arthroplasty [Recovered/Resolved with Sequelae]
  - Back disorder [Not Recovered/Not Resolved]
  - Muscular weakness [Unknown]
  - Intervertebral disc protrusion [Unknown]
  - Hypotension [Recovered/Resolved]
  - Oedema peripheral [Recovered/Resolved]
  - Eye swelling [Recovered/Resolved]
  - Iron deficiency anaemia [Not Recovered/Not Resolved]
  - Influenza like illness [Unknown]
  - Fall [Recovered/Resolved]
  - Nasopharyngitis [Recovered/Resolved]
  - Rash [Recovered/Resolved]
  - Memory impairment [Not Recovered/Not Resolved]
  - Spondylolisthesis [Unknown]
  - Fracture [Unknown]
  - Gastrooesophageal reflux disease [Recovered/Resolved]
  - Skin abrasion [Unknown]
  - Back pain [Unknown]
  - Balance disorder [Not Recovered/Not Resolved]
  - Back injury [Not Recovered/Not Resolved]
  - Cough [Recovered/Resolved]

NARRATIVE: CASE EVENT DATE: 201410
